FAERS Safety Report 4726832-8 (Version None)
Quarter: 2005Q3

REPORT INFORMATION
  Report Type: 
  Country: None (occurrence: None)
  Receive Date: 20050726
  Receipt Date: 20050718
  Transmission Date: 20060218
  Serious: Yes (Death, Other)
  Sender: FDA-Public Use
  Company Number: DEU-2005-0001530

PATIENT
  Age: 32 Year
  Sex: Male

DRUGS (2)
  1. DHC PLUS [Suspect]
     Dosage: ORAL
     Route: 048
  2. UNKNOWN() [Concomitant]
     Indication: DRUG USE FOR UNKNOWN INDICATION

REACTIONS (4)
  - COMPLETED SUICIDE [None]
  - DRUG ABUSER [None]
  - INTENTIONAL MISUSE [None]
  - MULTIPLE DRUG OVERDOSE [None]
